FAERS Safety Report 7369148-6 (Version None)
Quarter: 2011Q1

REPORT INFORMATION
  Report Type: 
  Country: None (occurrence: None)
  Receive Date: 20110323
  Receipt Date: 20110318
  Transmission Date: 20110831
  Serious: No
  Sender: FDA-Public Use
  Company Number: US-PFIZER INC-2011060560

PATIENT
  Sex: Male

DRUGS (2)
  1. VIAGRA [Suspect]
     Dosage: 50 MG, UNK
     Route: 048
  2. VIAGRA [Suspect]
     Dosage: UNKNOWN
     Route: 048

REACTIONS (1)
  - PENIS DISORDER [None]
